FAERS Safety Report 4555093-8 (Version None)
Quarter: 2005Q1

REPORT INFORMATION
  Report Type: 
  Country: None (occurrence: None)
  Receive Date: 20041228
  Receipt Date: 20040802
  Transmission Date: 20050727
  Serious: Yes (Other)
  Sender: FDA-Public Use
  Company Number: PHEH2004US04093

PATIENT
  Age: 56 Year
  Sex: Female

DRUGS (15)
  1. AREDIA [Suspect]
     Dosage: 60-90 MG, QMO OR Q3W, INTRAVENOUS
     Route: 042
     Dates: start: 19950906, end: 20030731
  2. ZOMETA [Suspect]
     Dosage: ONCE/SINGLE
     Dates: start: 20030106, end: 20030106
  3. EPOETIN ALFA (EPOETIN ALFA) [Concomitant]
  4. LORAZEPAM [Concomitant]
  5. CYANOCOBALAMIN [Concomitant]
  6. DIPHENHYDRAMINE HCL [Concomitant]
  7. ONDANSETRON HCL [Concomitant]
  8. PROCHLORPERAZINE [Concomitant]
  9. MS CONTIN [Concomitant]
  10. PRILOSEC [Concomitant]
  11. PHENOBARBITAL [Concomitant]
  12. EVISTA [Concomitant]
  13. ACTOS (PIOGLITAZONE, PIOGLITAZONE HYDROCHLORIDE) [Concomitant]
  14. TENORMIN [Concomitant]
  15. FOLIC ACID [Concomitant]

REACTIONS (3)
  - GINGIVAL DISORDER [None]
  - OSTEONECROSIS [None]
  - TOOTH EXTRACTION [None]
